FAERS Safety Report 7625951-6 (Version None)
Quarter: 2011Q3

REPORT INFORMATION
  Report Type: 
  Country: None (occurrence: None)
  Receive Date: 20110721
  Receipt Date: 20110721
  Transmission Date: 20111222
  Serious: No
  Sender: FDA-Public Use
  Company Number: None

PATIENT
  Age: 55 Year
  Sex: Female
  Weight: 51.709 kg

DRUGS (2)
  1. NUVIGIL [Suspect]
     Indication: INSOMNIA
     Dosage: I TAB
     Route: 002
     Dates: start: 20110622, end: 20110705
  2. ATIVAN [Interacting]
     Route: 048

REACTIONS (3)
  - CONFUSIONAL STATE [None]
  - AMNESIA [None]
  - ANXIETY [None]
